FAERS Safety Report 21525083 (Version 1)
Quarter: 2022Q4

REPORT INFORMATION
  Report Type: Spontaneous
  Country: FR (occurrence: FR)
  Receive Date: 20221030
  Receipt Date: 20221030
  Transmission Date: 20230113
  Serious: Yes (Other)
  Sender: FDA-Public Use
  Company Number: None

PATIENT
  Age: 91 Year
  Sex: Male

DRUGS (2)
  1. LEVOFLOXACIN [Suspect]
     Active Substance: LEVOFLOXACIN
     Indication: Device related infection
     Dosage: UNIT DOSE :   1 DOSAGE FORM, FREQUENCY TIME : 2 DAYS, THERAPY END DATE : NASK
     Route: 065
     Dates: start: 20220725
  2. RIFAMPIN [Suspect]
     Active Substance: RIFAMPIN
     Indication: Device related infection
     Dosage: UNIT DOSE : 2 DOSAGE FORM, FREQUENCY TIME : 2 DAYS, DURATION : 40 DAYS
     Route: 065
     Dates: start: 20220725, end: 20220903

REACTIONS (2)
  - Rash maculo-papular [Recovered/Resolved]
  - Pruritus [Recovered/Resolved]

NARRATIVE: CASE EVENT DATE: 20220824
